FAERS Safety Report 5154476-5 (Version None)
Quarter: 2006Q4

REPORT INFORMATION
  Report Type: 
  Country: None (occurrence: None)
  Receive Date: 20061120
  Receipt Date: 20061115
  Transmission Date: 20070319
  Serious: Yes (Hospitalization, Other)
  Sender: FDA-Public Use
  Company Number: US-ABBOTT-06P-163-0350483-00

PATIENT
  Sex: Female
  Weight: 67.192 kg

DRUGS (13)
  1. HUMIRA [Suspect]
     Indication: RHEUMATOID ARTHRITIS
     Route: 058
     Dates: start: 20050101
  2. TRIAZOLAM [Concomitant]
     Indication: INSOMNIA
  3. GABAPENTIN [Concomitant]
     Indication: NERVOUS SYSTEM DISORDER
  4. CADEUT [Concomitant]
     Indication: BLOOD PRESSURE
  5. CADEUT [Concomitant]
     Indication: BLOOD CHOLESTEROL
  6. LEXAPRO [Concomitant]
     Indication: ANXIETY
  7. LEXAPRO [Concomitant]
     Indication: DEPRESSION
  8. CLOPIDOGREL BISULFATE [Concomitant]
     Indication: CARDIAC DISORDER
  9. PRAVASTATIN SODIUM [Concomitant]
     Indication: BLOOD CHOLESTEROL
  10. LORAZEPAM [Concomitant]
     Indication: ANXIETY
  11. PREDNISONE TAB [Concomitant]
     Indication: ARTHRITIS
  12. MORPHINE SULFATE [Concomitant]
     Indication: PAIN
  13. ACETYLSALICYLIC ACID SRT [Concomitant]
     Indication: CARDIAC DISORDER

REACTIONS (3)
  - CORONARY ARTERY OCCLUSION [None]
  - FALL [None]
  - HIP FRACTURE [None]
